FAERS Safety Report 19959558 (Version 1)
Quarter: 2021Q4

REPORT INFORMATION
  Report Type: Spontaneous
  Country: US (occurrence: US)
  Receive Date: 20211015
  Receipt Date: 20211015
  Transmission Date: 20220303
  Serious: No
  Sender: FDA-Public Use
  Company Number: US-PFIZER INC-202100958231

PATIENT
  Sex: Male

DRUGS (1)
  1. RIFABUTIN [Suspect]
     Active Substance: RIFABUTIN
     Indication: Helicobacter infection
     Dosage: 150 MG, 2X/DAY
     Route: 048

REACTIONS (6)
  - Faeces discoloured [Unknown]
  - Chromaturia [Unknown]
  - Tear discolouration [Unknown]
  - Sputum discoloured [Unknown]
  - Dysgeusia [Unknown]
  - Product use in unapproved indication [Unknown]
